FAERS Safety Report 22359398 (Version 2)
Quarter: 2024Q2

REPORT INFORMATION
  Report Type: Spontaneous
  Country: JP (occurrence: JP)
  Receive Date: 20230524
  Receipt Date: 20240401
  Transmission Date: 20240716
  Serious: Yes (Other)
  Sender: FDA-Public Use
  Company Number: JP-BRISTOL-MYERS SQUIBB COMPANY-2023-071663

PATIENT
  Age: 71 Year
  Sex: Male

DRUGS (1)
  1. BARACLUDE [Suspect]
     Active Substance: ENTECAVIR
     Indication: Product used for unknown indication
     Dosage: DOSE : UNAVAILABLE;     FREQ : EVERY DAY
     Route: 048

REACTIONS (2)
  - Neoplasm malignant [Unknown]
  - Off label use [Unknown]
